FAERS Safety Report 23886379 (Version 4)
Quarter: 2025Q4

REPORT INFORMATION
  Report Type: Report from Study
  Country: US (occurrence: US)
  Receive Date: 20240522
  Receipt Date: 20251118
  Transmission Date: 20260118
  Serious: Yes (Other)
  Sender: AMGEN
  Company Number: US-HORIZON THERAPEUTICS-HZN-2024-005626

PATIENT
  Age: 32 Year
  Sex: Female

DRUGS (1)
  1. UPLIZNA [Suspect]
     Active Substance: INEBILIZUMAB-CDON
     Indication: Neuromyelitis optica spectrum disorder
     Dosage: 300 MILLIGRAM, DAY 1, DAY 15 THEN EVERY SIX MONTHS FROM FIRST DOSE
     Route: 042
     Dates: start: 20240514

REACTIONS (5)
  - Pneumonitis [Recovered/Resolved]
  - JC polyomavirus test positive [Recovered/Resolved]
  - Malaise [Unknown]
  - Urinary tract infection [Recovered/Resolved]
  - Arthralgia [Recovered/Resolved]

NARRATIVE: CASE EVENT DATE: 20240501
